FAERS Safety Report 7814944-1 (Version None)
Quarter: 2011Q4

REPORT INFORMATION
  Report Type: 
  Country: None (occurrence: None)
  Receive Date: 20111013
  Receipt Date: 20111013
  Transmission Date: 20120403
  Serious: No
  Sender: FDA-Public Use
  Company Number: None

PATIENT
  Age: 75 Year
  Sex: Female
  Weight: 56.6996 kg

DRUGS (1)
  1. CIPROFLOXACIN HCL [Suspect]
     Indication: INFECTION
     Dosage: 500 MG 1 TABLET TWICE DAILY FOR 10 DAYS
     Dates: start: 20110629, end: 20110708

REACTIONS (4)
  - INCREASED TENDENCY TO BRUISE [None]
  - TENDON PAIN [None]
  - SKIN DISORDER [None]
  - ARTHRALGIA [None]
